FAERS Safety Report 13690451 (Version 1)
Quarter: 2017Q2

REPORT INFORMATION
  Report Type: Spontaneous
  Country: PR (occurrence: US)
  Receive Date: 20170626
  Receipt Date: 20170626
  Transmission Date: 20170830
  Serious: Yes (Hospitalization)
  Sender: FDA-Public Use
  Company Number: None

PATIENT
  Age: 27 Year
  Sex: Male
  Weight: 83.64 kg

DRUGS (4)
  1. EMTRICITABINE/TENOFOVIR ALEFANAMIDE [Concomitant]
  2. DARUNAVIR [Concomitant]
     Active Substance: DARUNAVIR
  3. RITONAVIR. [Concomitant]
     Active Substance: RITONAVIR
  4. 5-FLUOROURACIL (5-FU) [Suspect]
     Active Substance: FLUOROURACIL
     Dates: end: 20170609

REACTIONS (5)
  - Gastritis [None]
  - Enterocolitis infectious [None]
  - Gastroenteritis [None]
  - Dehydration [None]
  - Abdominal pain [None]

NARRATIVE: CASE EVENT DATE: 20170611
